FAERS Safety Report 8958527 (Version 1)
Quarter: 2012Q4

REPORT INFORMATION
  Report Type: Spontaneous
  Country: US (occurrence: None)
  Receive Date: 20121205
  Receipt Date: 20121205
  Transmission Date: 20130627
  Serious: Yes (Life-Threatening, Hospitalization)
  Sender: FDA-Public Use
  Company Number: None

PATIENT
  Age: 32 Year
  Sex: Male

DRUGS (2)
  1. CARBAMAZEPINE [Suspect]
     Indication: SEIZURE
     Route: 048
     Dates: start: 201206
  2. CARBAMAZEPINE [Suspect]
     Indication: SEIZURE
     Dates: start: 201209

REACTIONS (1)
  - Stevens-Johnson syndrome [None]
